FAERS Safety Report 10012735 (Version 18)
Quarter: 2015Q1

REPORT INFORMATION
  Report Type: Report from Study
  Country: AU (occurrence: AU)
  Receive Date: 20140314
  Receipt Date: 20150218
  Transmission Date: 20150720
  Serious: Yes (Hospitalization, Other)
  Sender: FDA-Public Use
  Company Number: PHHY2014AU031404

PATIENT
  Age: 41 Year
  Sex: Male

DRUGS (6)
  1. RIBAVIRIN. [Suspect]
     Active Substance: RIBAVIRIN
     Indication: HEPATITIS C
     Dosage: 400 MG, BID
     Route: 048
     Dates: start: 20140207
  2. RIBAVIRIN. [Suspect]
     Active Substance: RIBAVIRIN
     Dosage: UNK
     Route: 065
  3. CLOZARIL [Suspect]
     Active Substance: CLOZAPINE
     Indication: SCHIZOPHRENIA
     Dosage: 500 MG, QD NOCTE
     Route: 048
     Dates: start: 2008
  4. CLOZARIL [Suspect]
     Active Substance: CLOZAPINE
     Dosage: 500 OT, UNK
     Route: 048
     Dates: start: 20081112
  5. PEGYLATED INTERFERON ALFA-2A [Suspect]
     Active Substance: PEGINTERFERON ALFA-2A
     Indication: HEPATITIS C
     Dosage: 180 MCG WEEKLY INJECT BY SCOT
     Route: 030
     Dates: start: 20140207
  6. PEGYLATED INTERFERON ALFA-2A [Suspect]
     Active Substance: PEGINTERFERON ALFA-2A
     Dosage: UNK
     Route: 030

REACTIONS (16)
  - Red blood cell count decreased [Not Recovered/Not Resolved]
  - White blood cell count decreased [Recovered/Resolved]
  - Platelet count decreased [Not Recovered/Not Resolved]
  - Hypersplenism [Unknown]
  - Macrocytosis [Not Recovered/Not Resolved]
  - Blood test abnormal [Unknown]
  - Hepatitis B virus test positive [Unknown]
  - Elliptocytosis [Unknown]
  - Hepatitis C [Unknown]
  - Neutropenia [Recovered/Resolved]
  - Anisocytosis [Unknown]
  - Mean cell haemoglobin increased [Not Recovered/Not Resolved]
  - Lymphocyte count increased [Not Recovered/Not Resolved]
  - Hepatitis A virus test positive [Unknown]
  - Mean cell volume increased [Not Recovered/Not Resolved]
  - Pancytopenia [Not Recovered/Not Resolved]

NARRATIVE: CASE EVENT DATE: 20130913
